FAERS Safety Report 20937561 (Version 1)
Quarter: 2022Q2

REPORT INFORMATION
  Report Type: Spontaneous
  Country: US (occurrence: None)
  Receive Date: 20220609
  Receipt Date: 20220609
  Transmission Date: 20220721
  Serious: No
  Sender: FDA-Public Use
  Company Number: 2022A211640

PATIENT
  Sex: Male

DRUGS (3)
  1. FARXIGA [Suspect]
     Active Substance: DAPAGLIFLOZIN PROPANEDIOL
     Indication: Cardiac failure
     Dosage: 10.0MG UNKNOWN
     Route: 048
  2. TOPROL XL [Concomitant]
     Active Substance: METOPROLOL SUCCINATE
  3. ENTRESTO [Concomitant]
     Active Substance: SACUBITRIL\VALSARTAN

REACTIONS (3)
  - Neuropathy peripheral [Unknown]
  - Intraocular pressure decreased [Unknown]
  - Rash [Unknown]
